FAERS Safety Report 4296704-4 (Version None)
Quarter: 2004Q1

REPORT INFORMATION
  Report Type: 
  Country: None (occurrence: None)
  Receive Date: 20040217
  Receipt Date: 20030407
  Transmission Date: 20041129
  Serious: Yes (Hospitalization, Disabling)
  Sender: FDA-Public Use
  Company Number: WAES 0304USA00822

PATIENT
  Age: 61 Year
  Sex: Female
  Weight: 84 kg

DRUGS (3)
  1. LASIX [Concomitant]
     Dates: start: 19600101
  2. HYDRODIURIL [Concomitant]
     Dates: start: 19600101
  3. VIOXX [Suspect]
     Indication: BACK PAIN
     Route: 048

REACTIONS (27)
  - ANGINA PECTORIS [None]
  - BACTERIURIA [None]
  - CARDIAC DISORDER [None]
  - CATARACT [None]
  - CULTURE URINE POSITIVE [None]
  - DEAFNESS NEUROSENSORY [None]
  - DIABETIC COMPLICATION [None]
  - DIABETIC RETINOPATHY [None]
  - ELECTROCARDIOGRAM T WAVE INVERSION [None]
  - ESCHERICHIA INFECTION [None]
  - FEELING ABNORMAL [None]
  - GASTROOESOPHAGEAL REFLUX DISEASE [None]
  - HEADACHE [None]
  - HYPERLIPIDAEMIA [None]
  - HYPERTENSION [None]
  - HYPOAESTHESIA [None]
  - HYPOGLYCAEMIA [None]
  - INJURY [None]
  - JOINT SWELLING [None]
  - LACUNAR INFARCTION [None]
  - MYOCARDIAL INFARCTION [None]
  - NOCTURIA [None]
  - OEDEMA PERIPHERAL [None]
  - REFUSAL OF TREATMENT BY PATIENT [None]
  - SKIN LESION [None]
  - SPINAL COLUMN STENOSIS [None]
  - WEIGHT INCREASED [None]
